FAERS Safety Report 8327321-4 (Version None)
Quarter: 2012Q2

REPORT INFORMATION
  Report Type: 
  Country: None (occurrence: None)
  Receive Date: 20120502
  Receipt Date: 20120423
  Transmission Date: 20120825
  Serious: No
  Sender: FDA-Public Use
  Company Number: US-BIOGENIDEC-2011BI012383

PATIENT
  Age: 25 Year
  Sex: Female

DRUGS (1)
  1. TYSABRI [Suspect]
     Indication: MULTIPLE SCLEROSIS
     Route: 042
     Dates: start: 20110316

REACTIONS (9)
  - PAIN IN EXTREMITY [None]
  - DIZZINESS [None]
  - SOMNOLENCE [None]
  - HEADACHE [None]
  - ASTHENIA [None]
  - FATIGUE [None]
  - DYSPNOEA [None]
  - ANGER [None]
  - FRUSTRATION [None]
